FAERS Safety Report 8073549-0 (Version None)
Quarter: 2012Q1

REPORT INFORMATION
  Report Type: 
  Country: None (occurrence: None)
  Receive Date: 20120120
  Receipt Date: 20120106
  Transmission Date: 20120608
  Serious: No
  Sender: FDA-Public Use
  Company Number: SPI201200007

PATIENT
  Age: 55 Year
  Sex: Female
  Weight: 50.8 kg

DRUGS (6)
  1. AMBIEN [Concomitant]
  2. AMITIZA [Suspect]
     Indication: IRRITABLE BOWEL SYNDROME
     Dosage: 8MCG, BID, ORAL, 8 MG SINGLE, ORAL
     Route: 048
     Dates: start: 20111222, end: 20111201
  3. AMITIZA [Suspect]
     Indication: IRRITABLE BOWEL SYNDROME
     Dosage: 8MCG, BID, ORAL, 8 MG SINGLE, ORAL
     Route: 048
     Dates: start: 20120105, end: 20120106
  4. AMITIZA [Suspect]
  5. CYTOMEL [Concomitant]
  6. ZOLOFT [Concomitant]

REACTIONS (7)
  - PAIN [None]
  - CHEST DISCOMFORT [None]
  - ASTHMA [None]
  - DRUG INEFFECTIVE [None]
  - NAUSEA [None]
  - DIZZINESS [None]
  - INFLUENZA LIKE ILLNESS [None]
